FAERS Safety Report 21010434 (Version 3)
Quarter: 2022Q3

REPORT INFORMATION
  Report Type: Spontaneous
  Country: TH (occurrence: TH)
  Receive Date: 20220627
  Receipt Date: 20220702
  Transmission Date: 20221027
  Serious: Yes (Other)
  Sender: FDA-Public Use
  Company Number: TH-NOVARTISPH-NVSC2022TH140911

PATIENT
  Age: 45 Year
  Sex: Female

DRUGS (47)
  1. SACUBITRIL\VALSARTAN [Suspect]
     Active Substance: SACUBITRIL\VALSARTAN
     Indication: Product used for unknown indication
     Dosage: 0.25 DOSAGE FORM, QD (100) HS
     Route: 065
     Dates: start: 20200604
  2. SACUBITRIL\VALSARTAN [Suspect]
     Active Substance: SACUBITRIL\VALSARTAN
     Dosage: 0.25 DOSAGE FORM, BID (100)
     Route: 065
     Dates: start: 20200608
  3. SACUBITRIL\VALSARTAN [Suspect]
     Active Substance: SACUBITRIL\VALSARTAN
     Dosage: 0.5 DOSAGE FORM, QD BED TIME (200)
     Route: 065
     Dates: start: 20200618
  4. SACUBITRIL\VALSARTAN [Suspect]
     Active Substance: SACUBITRIL\VALSARTAN
     Dosage: 0.5 DOSAGE FORM, QD HS (200)
     Route: 065
     Dates: start: 20200622
  5. SACUBITRIL\VALSARTAN [Suspect]
     Active Substance: SACUBITRIL\VALSARTAN
     Dosage: 0.5 DOSAGE FORM, QD  HS (100)
     Route: 065
     Dates: start: 20200629
  6. SACUBITRIL\VALSARTAN [Suspect]
     Active Substance: SACUBITRIL\VALSARTAN
     Dosage: 0.25-0-0.5 (100)
     Route: 065
     Dates: start: 20200714
  7. SACUBITRIL\VALSARTAN [Suspect]
     Active Substance: SACUBITRIL\VALSARTAN
     Dosage: 0.5 DOSAGE FORM, BID (100)
     Route: 065
     Dates: start: 20200729
  8. SACUBITRIL\VALSARTAN [Suspect]
     Active Substance: SACUBITRIL\VALSARTAN
     Dosage: 0.5 DOSAGE FORM, BID (100)
     Route: 065
     Dates: start: 20200818
  9. SACUBITRIL\VALSARTAN [Suspect]
     Active Substance: SACUBITRIL\VALSARTAN
     Dosage: 0.5 DOSAGE FORM, BID (200)
     Route: 065
     Dates: start: 20200828
  10. SACUBITRIL\VALSARTAN [Suspect]
     Active Substance: SACUBITRIL\VALSARTAN
     Dosage: 0.5 DOSAGE FORM, BID (100)
     Route: 065
     Dates: start: 20201102
  11. SACUBITRIL\VALSARTAN [Suspect]
     Active Substance: SACUBITRIL\VALSARTAN
     Dosage: 0.5 DOSAGE FORM, BID (100)
     Route: 065
     Dates: start: 20210104
  12. SACUBITRIL\VALSARTAN [Suspect]
     Active Substance: SACUBITRIL\VALSARTAN
     Dosage: 0.5 DOSAGE FORM, BID (100)
     Route: 065
     Dates: start: 20210225
  13. SACUBITRIL\VALSARTAN [Suspect]
     Active Substance: SACUBITRIL\VALSARTAN
     Dosage: 0.5 DOSAGE FORM, BID (100)
     Route: 065
     Dates: start: 20210511
  14. SACUBITRIL\VALSARTAN [Suspect]
     Active Substance: SACUBITRIL\VALSARTAN
     Dosage: 0.5 DOSAGE FORM, BID (200)
     Route: 065
     Dates: start: 20220107
  15. ALDACTONE [Concomitant]
     Active Substance: SPIRONOLACTONE
     Indication: Product used for unknown indication
     Dosage: 1 DOSAGE FORM, QD (25)
     Route: 065
     Dates: start: 20200530
  16. ALDACTONE [Concomitant]
     Active Substance: SPIRONOLACTONE
     Dosage: 0.5 DOSAGE FORM, QD (25)
     Route: 065
     Dates: start: 20200604
  17. ALDACTONE [Concomitant]
     Active Substance: SPIRONOLACTONE
     Dosage: 0.5 DOSAGE FORM, QD (25)
     Route: 065
     Dates: start: 20200608
  18. ALDACTONE [Concomitant]
     Active Substance: SPIRONOLACTONE
     Dosage: 0.5 DOSAGE FORM, QD (25)
     Route: 065
     Dates: start: 20200615
  19. ALDACTONE [Concomitant]
     Active Substance: SPIRONOLACTONE
     Dosage: 0.5 DOSAGE FORM, QD (25)
     Route: 065
     Dates: start: 20200618
  20. ALDACTONE [Concomitant]
     Active Substance: SPIRONOLACTONE
     Dosage: 0.5 DOSAGE FORM, QD (25)
     Route: 065
     Dates: start: 20200622
  21. ALDACTONE [Concomitant]
     Active Substance: SPIRONOLACTONE
     Dosage: 0.5 DOSAGE FORM, QD (25)
     Route: 065
     Dates: start: 20200629
  22. ALDACTONE [Concomitant]
     Active Substance: SPIRONOLACTONE
     Dosage: 0.5 DOSAGE FORM, QD (25)
     Route: 065
     Dates: start: 20200714
  23. ALDACTONE [Concomitant]
     Active Substance: SPIRONOLACTONE
     Dosage: 0.5 DOSAGE FORM, QD (25)
     Route: 065
     Dates: start: 20200729
  24. ALDACTONE [Concomitant]
     Active Substance: SPIRONOLACTONE
     Dosage: 1 DOSAGE FORM, QD (25)
     Route: 065
     Dates: start: 20200828
  25. ALDACTONE [Concomitant]
     Active Substance: SPIRONOLACTONE
     Dosage: 1 DOSAGE FORM, QD (25)
     Route: 065
     Dates: start: 20201102
  26. ALDACTONE [Concomitant]
     Active Substance: SPIRONOLACTONE
     Dosage: 1 DOSAGE FORM, QD (25)
     Route: 065
     Dates: start: 20210104
  27. ALDACTONE [Concomitant]
     Active Substance: SPIRONOLACTONE
     Dosage: 1 DOSAGE FORM, QD (25)
     Route: 065
     Dates: start: 20210225
  28. ALDACTONE [Concomitant]
     Active Substance: SPIRONOLACTONE
     Dosage: 1 DOSAGE FORM, QD (25)
     Route: 065
     Dates: start: 20220107
  29. IVABRADINE [Concomitant]
     Active Substance: IVABRADINE
     Indication: Product used for unknown indication
     Dosage: 1 DOSAGE FORM, BID (5)
     Route: 065
     Dates: start: 20200618
  30. IVABRADINE [Concomitant]
     Active Substance: IVABRADINE
     Dosage: 0.5 DOSAGE FORM, BID (5)
     Route: 065
     Dates: start: 20200618
  31. IVABRADINE [Concomitant]
     Active Substance: IVABRADINE
     Dosage: 1.5 DOSAGE FORM, BID (5)
     Route: 065
     Dates: start: 20200618
  32. IVABRADINE [Concomitant]
     Active Substance: IVABRADINE
     Dosage: 1 DOSAGE FORM, BID (5)
     Route: 065
     Dates: start: 20200622
  33. IVABRADINE [Concomitant]
     Active Substance: IVABRADINE
     Dosage: 1.5 DOSAGE FORM, BID (5)
     Route: 065
     Dates: start: 20200629
  34. IVABRADINE [Concomitant]
     Active Substance: IVABRADINE
     Dosage: 1.5 DOSAGE FORM, BID (5)
     Route: 065
     Dates: start: 20200828
  35. IVABRADINE [Concomitant]
     Active Substance: IVABRADINE
     Dosage: 1 DOSAGE FORM, BID (5)
     Route: 065
     Dates: start: 20201102
  36. IVABRADINE [Concomitant]
     Active Substance: IVABRADINE
     Dosage: 1 DOSAGE FORM, BID (5)
     Route: 065
     Dates: start: 20210104
  37. IVABRADINE [Concomitant]
     Active Substance: IVABRADINE
     Dosage: 1 DOSAGE FORM, BID (5)
     Route: 065
     Dates: start: 20210225
  38. IVABRADINE [Concomitant]
     Active Substance: IVABRADINE
     Dosage: 1 DOSAGE FORM, BID (5)
     Route: 065
     Dates: start: 20220107
  39. FUROSEMIDE [Concomitant]
     Active Substance: FUROSEMIDE
     Indication: Product used for unknown indication
     Dosage: 0.5 DOSAGE FORM, BID (40)
     Route: 065
     Dates: start: 20200528
  40. FUROSEMIDE [Concomitant]
     Active Substance: FUROSEMIDE
     Dosage: 1 DOSAGE FORM, BID (40)
     Route: 065
     Dates: start: 20200530
  41. FUROSEMIDE [Concomitant]
     Active Substance: FUROSEMIDE
     Dosage: 0.5 DOSAGE FORM, BID (40)
     Route: 065
     Dates: start: 20200604
  42. FUROSEMIDE [Concomitant]
     Active Substance: FUROSEMIDE
     Dosage: 0.5 DOSAGE FORM, QD (40)
     Route: 065
     Dates: start: 20200608
  43. FUROSEMIDE [Concomitant]
     Active Substance: FUROSEMIDE
     Dosage: 1 DOSAGE FORM, QD (40)
     Route: 065
     Dates: start: 20200618
  44. FUROSEMIDE [Concomitant]
     Active Substance: FUROSEMIDE
     Dosage: 1 DOSAGE FORM, QD (40)
     Route: 065
     Dates: start: 20200622
  45. FUROSEMIDE [Concomitant]
     Active Substance: FUROSEMIDE
     Dosage: 1 DOSAGE FORM, QD (40)
     Route: 065
     Dates: start: 20200629
  46. FUROSEMIDE [Concomitant]
     Active Substance: FUROSEMIDE
     Dosage: 0.5 DOSAGE FORM, QD (40)
     Route: 065
     Dates: start: 20200714
  47. FUROSEMIDE [Concomitant]
     Active Substance: FUROSEMIDE
     Dosage: 0.5 DOSAGE FORM, QD (40)
     Route: 065
     Dates: start: 20200729

REACTIONS (7)
  - Ejection fraction decreased [Unknown]
  - Underdose [Unknown]
  - Orthostatic hypotension [Unknown]
  - Hypotension [Unknown]
  - Heart rate increased [Unknown]
  - Inappropriate schedule of product administration [Unknown]
  - Wrong technique in product usage process [Unknown]
